FAERS Safety Report 6819971-9 (Version None)
Quarter: 2010Q3

REPORT INFORMATION
  Report Type: 
  Country: None (occurrence: None)
  Receive Date: 20100707
  Receipt Date: 20100701
  Transmission Date: 20110219
  Serious: Yes (Hospitalization)
  Sender: FDA-Public Use
  Company Number: DE-ROCHE-711886

PATIENT
  Sex: Female
  Weight: 73.3 kg

DRUGS (4)
  1. TOCILIZUMAB [Suspect]
     Indication: RHEUMATOID ARTHRITIS
     Dosage: LAST APPLICATION PRIOR TO THE EVENT WAS ON 10 MAR 2010
     Route: 042
     Dates: start: 20090728, end: 20100310
  2. UNKNOWN HYPERTENSION DRUG [Concomitant]
     Indication: HYPERTENSION
  3. CORTICOSTEROIDS [Concomitant]
     Indication: RHEUMATOID ARTHRITIS
     Route: 048
  4. NON-STEROIDAL ANTI-INFLAMMATORY NOS [Concomitant]
     Route: 048

REACTIONS (2)
  - HEADACHE [None]
  - SPEECH DISORDER [None]
